FAERS Safety Report 5761525-X (Version None)
Quarter: 2008Q2

REPORT INFORMATION
  Report Type: 
  Country: None (occurrence: None)
  Receive Date: 20080606
  Receipt Date: 20080603
  Transmission Date: 20081010
  Serious: Yes (Other)
  Sender: FDA-Public Use
  Company Number: US-BAXTER-2008BH001915

PATIENT
  Age: 28 Year
  Sex: Female

DRUGS (4)
  1. HEPARIN SODIUM INJECTION [Suspect]
     Indication: COAGULOPATHY
     Route: 058
     Dates: start: 20080101, end: 20080301
  2. HEPARIN SODIUM INJECTION [Suspect]
     Indication: PULMONARY EMBOLISM
     Route: 058
     Dates: start: 20080101, end: 20080301
  3. HEPARIN SODIUM INJECTION [Suspect]
     Indication: VARICOSE VEIN
     Route: 058
     Dates: start: 20080101, end: 20080301
  4. VITAMIN TAB [Concomitant]
     Indication: PREGNANCY
     Dosage: DOSE UNIT:UNKNOWN
     Route: 065

REACTIONS (4)
  - ABDOMINAL PAIN [None]
  - DIZZINESS [None]
  - DRUG EXPOSURE DURING PREGNANCY [None]
  - NIGHT SWEATS [None]
